FAERS Safety Report 21468419 (Version 1)
Quarter: 2022Q4

REPORT INFORMATION
  Report Type: Spontaneous
  Country: US (occurrence: None)
  Receive Date: 20221015
  Receipt Date: 20221015
  Transmission Date: 20230112
  Serious: No
  Sender: FDA-Public Use
  Company Number: None

PATIENT
  Age: 53 Year
  Sex: Female

DRUGS (1)
  1. CAPECITABINE [Suspect]
     Active Substance: CAPECITABINE
     Indication: Rectosigmoid cancer
     Dosage: 1500MG OTHER ORAL?
     Route: 048
     Dates: start: 202209

REACTIONS (3)
  - Hypoaesthesia [None]
  - Electric shock sensation [None]
  - Formication [None]

NARRATIVE: CASE EVENT DATE: 20221011
